FAERS Safety Report 25541140 (Version 1)
Quarter: 2025Q3

REPORT INFORMATION
  Report Type: Report from Study
  Country: CA (occurrence: CA)
  Receive Date: 20250710
  Receipt Date: 20250710
  Transmission Date: 20251020
  Serious: Yes (Hospitalization)
  Sender: ABBVIE
  Company Number: CA-ABBVIE-6364333

PATIENT
  Age: 40 Year
  Sex: Male

DRUGS (2)
  1. RINVOQ [Suspect]
     Active Substance: UPADACITINIB
     Indication: Crohn^s disease
     Route: 048
  2. RINVOQ [Suspect]
     Active Substance: UPADACITINIB
     Indication: Crohn^s disease
     Route: 048

REACTIONS (7)
  - Haematochezia [Recovering/Resolving]
  - Crohn^s disease [Recovering/Resolving]
  - Body temperature abnormal [Recovering/Resolving]
  - Fatigue [Recovering/Resolving]
  - Chills [Unknown]
  - Faeces soft [Unknown]
  - Defaecation urgency [Recovering/Resolving]

NARRATIVE: CASE EVENT DATE: 20250501
